FAERS Safety Report 8771155 (Version 1)
Quarter: 2012Q4

REPORT INFORMATION
  Report Type: 
  Country: DK (occurrence: JP)
  Receive Date: 20120905
  Receipt Date: 20120905
  Transmission Date: 20130627
  Serious: Yes (Life-Threatening)
  Sender: FDA-Public Use
  Company Number: JP-FRI-1000038270

PATIENT
  Age: 33 Year
  Sex: Male

DRUGS (6)
  1. LEXAPRO [Suspect]
     Indication: PANIC DISORDER
     Dosage: 10 mg
     Route: 048
     Dates: start: 20120802, end: 20120818
  2. LEXOTAN [Concomitant]
     Dosage: 4 mg
     Route: 048
     Dates: start: 20120802
  3. REBAMIPIDE [Concomitant]
     Dosage: 300 mg
     Route: 048
     Dates: start: 20120802
  4. URSO [Concomitant]
     Dosage: 300 mg
     Route: 048
     Dates: start: 20120802
  5. TAPIZOL [Concomitant]
     Dosage: 30 mg
     Route: 048
     Dates: start: 20120802
  6. MEDETAX [Concomitant]
     Route: 048
     Dates: start: 20120802

REACTIONS (2)
  - Drug-induced liver injury [Unknown]
  - Off label use [Recovered/Resolved]
